FAERS Safety Report 17546573 (Version 1)
Quarter: 2020Q1

REPORT INFORMATION
  Report Type: Report from Study
  Country: IT (occurrence: IT)
  Receive Date: 20200316
  Receipt Date: 20200316
  Transmission Date: 20200409
  Serious: Yes (Other)
  Sender: FDA-Public Use
  Company Number: IT-INCYTE CORPORATION-2020IN002068

PATIENT

DRUGS (5)
  1. JAKAVI [Suspect]
     Active Substance: RUXOLITINIB
     Dosage: 10 OT
     Route: 065
     Dates: start: 20171207, end: 20180320
  2. JAKAVI [Suspect]
     Active Substance: RUXOLITINIB
     Dosage: 15 OT
     Route: 065
     Dates: start: 20180321, end: 20190502
  3. JAKAVI [Suspect]
     Active Substance: RUXOLITINIB
     Dosage: 20 OT
     Route: 065
     Dates: start: 20171002, end: 20171206
  4. JAKAVI [Suspect]
     Active Substance: RUXOLITINIB
     Indication: MYELOFIBROSIS
     Dosage: 40 OT
     Route: 065
     Dates: start: 20170922, end: 20171018
  5. JAKAVI [Suspect]
     Active Substance: RUXOLITINIB
     Dosage: 10 OT
     Route: 065
     Dates: start: 20190503

REACTIONS (2)
  - Basal cell carcinoma [Unknown]
  - Pyrexia [Unknown]

NARRATIVE: CASE EVENT DATE: 20191001
